FAERS Safety Report 7328496-6 (Version None)
Quarter: 2011Q1

REPORT INFORMATION
  Report Type: 
  Country: None (occurrence: None)
  Receive Date: 20110303
  Receipt Date: 20110224
  Transmission Date: 20110831
  Serious: Yes (Hospitalization)
  Sender: FDA-Public Use
  Company Number: CA-JNJFOC-20110300425

PATIENT
  Sex: Male
  Weight: 61.7 kg

DRUGS (4)
  1. REMICADE [Suspect]
     Indication: CROHN'S DISEASE
     Dosage: NOV-2010
     Route: 042
  2. REMICADE [Suspect]
     Dosage: NOV-2010
     Route: 042
  3. FOSAMAX [Concomitant]
  4. NEXIUM [Concomitant]

REACTIONS (1)
  - INTESTINAL RESECTION [None]
